FAERS Safety Report 9707009 (Version 1)
Quarter: 2013Q4

REPORT INFORMATION
  Report Type: Spontaneous
  Country: US (occurrence: US)
  Receive Date: 20131125
  Receipt Date: 20131125
  Transmission Date: 20140711
  Serious: No
  Sender: FDA-Public Use
  Company Number: US-PFIZER INC-2013331750

PATIENT
  Age: 36 Year
  Sex: Female
  Weight: 63.49 kg

DRUGS (4)
  1. ADVIL [Suspect]
     Indication: MIGRAINE
     Dosage: 400 MG (2X200 MG), AS NEEDED
     Route: 048
  2. ADVIL [Suspect]
     Indication: DYSMENORRHOEA
  3. ADVIL [Suspect]
     Indication: SINUS HEADACHE
  4. EXCEDRIN [Suspect]
     Indication: MIGRAINE
     Dosage: UNK, AS NEEDED
     Dates: start: 2011

REACTIONS (4)
  - Drug ineffective [Unknown]
  - Drug intolerance [Unknown]
  - Abdominal discomfort [Unknown]
  - Blood iron decreased [Unknown]
